FAERS Safety Report 23047700 (Version 1)
Quarter: 2023Q4

REPORT INFORMATION
  Report Type: Report from Study
  Country: TW (occurrence: TW)
  Receive Date: 20231010
  Receipt Date: 20231010
  Transmission Date: 20240110
  Serious: Yes (Other)
  Sender: FDA-Public Use
  Company Number: TW-BAYER-2023A141661

PATIENT
  Age: 73 Year
  Sex: Female

DRUGS (4)
  1. EYLEA [Suspect]
     Active Substance: AFLIBERCEPT
     Indication: Neovascular age-related macular degeneration
     Dosage: UNK UNK, ONCE, SOLUTION FOR INJECTION, STRENGTH- 40MG/ML
     Dates: start: 20220209, end: 20220209
  2. EYLEA [Suspect]
     Active Substance: AFLIBERCEPT
     Dosage: UNK UNK, ONCE, SOLUTION FOR INJECTION, STRENGTH- 40MG/ML
     Dates: start: 20220309, end: 20220309
  3. EYLEA [Suspect]
     Active Substance: AFLIBERCEPT
     Dosage: UNK UNK, ONCE, SOLUTION FOR INJECTION, STRENGTH- 40MG/ML
     Dates: start: 20220413, end: 20220413
  4. EYLEA [Suspect]
     Active Substance: AFLIBERCEPT
     Dosage: UNK UNK, ONCE, SOLUTION FOR INJECTION, STRENGTH- 40MG/ML
     Dates: start: 20220520

REACTIONS (1)
  - Corneal disorder [Not Recovered/Not Resolved]

NARRATIVE: CASE EVENT DATE: 20230925
